FAERS Safety Report 22767690 (Version 11)
Quarter: 2024Q1

REPORT INFORMATION
  Report Type: Spontaneous
  Country: AU (occurrence: AU)
  Receive Date: 20230731
  Receipt Date: 20240329
  Transmission Date: 20240409
  Serious: Yes (Hospitalization)
  Sender: FDA-Public Use
  Company Number: AU-TASMAN PHARMA, INC.-2023TSM00135

PATIENT
  Age: 27 Year
  Sex: Male
  Weight: 78 kg

DRUGS (102)
  1. CLOZAPINE [Suspect]
     Active Substance: CLOZAPINE
     Dosage: 12.5 MG
     Dates: start: 20140516, end: 20140521
  2. CLOZAPINE [Suspect]
     Active Substance: CLOZAPINE
     Dosage: 100 MG
     Dates: start: 20140522, end: 20140528
  3. CLOZAPINE [Suspect]
     Active Substance: CLOZAPINE
     Dosage: 300 MG
     Dates: start: 20170208, end: 20170213
  4. CLOZAPINE [Suspect]
     Active Substance: CLOZAPINE
     Dosage: 400 MG
     Dates: start: 20170214, end: 20170220
  5. CLOZAPINE [Suspect]
     Active Substance: CLOZAPINE
     Dosage: 350 MG
     Dates: start: 20170221, end: 20170228
  6. CLOZAPINE [Suspect]
     Active Substance: CLOZAPINE
     Dosage: 300 MG
     Dates: start: 20170301, end: 20170430
  7. CLOZAPINE [Suspect]
     Active Substance: CLOZAPINE
     Dosage: 750 MG
     Dates: start: 20200917, end: 20201014
  8. CLOZAPINE [Suspect]
     Active Substance: CLOZAPINE
     Dosage: 700 MG
     Dates: start: 20201015, end: 20201208
  9. CLOZAPINE [Suspect]
     Active Substance: CLOZAPINE
     Dosage: 800 MG
     Dates: start: 20201209, end: 20210222
  10. CLOZAPINE [Suspect]
     Active Substance: CLOZAPINE
     Dosage: 750 MG
     Dates: start: 20210223, end: 20210408
  11. CLOZAPINE [Suspect]
     Active Substance: CLOZAPINE
     Dosage: 800 MG
     Dates: start: 20210409, end: 20210614
  12. CLOZAPINE [Suspect]
     Active Substance: CLOZAPINE
     Dosage: 700 MG
     Dates: start: 20210615, end: 20210712
  13. CLOZAPINE [Suspect]
     Active Substance: CLOZAPINE
     Dosage: 750 MG
     Dates: start: 20210713, end: 20210809
  14. CLOZAPINE [Suspect]
     Active Substance: CLOZAPINE
     Dosage: 800 MG
     Dates: start: 20210810, end: 20220605
  15. CLOZAPINE [Suspect]
     Active Substance: CLOZAPINE
     Dosage: 750 MG
     Dates: start: 20220606, end: 20220704
  16. CLOZAPINE [Suspect]
     Active Substance: CLOZAPINE
     Dosage: 550 MG
     Dates: start: 20220705, end: 20220801
  17. CLOZAPINE [Suspect]
     Active Substance: CLOZAPINE
     Dosage: 800 MG
     Dates: start: 20221013, end: 20221107
  18. CLOZAPINE [Suspect]
     Active Substance: CLOZAPINE
     Dosage: 800 MG
     Dates: start: 20221206, end: 20230524
  19. CLOZAPINE [Suspect]
     Active Substance: CLOZAPINE
     Dosage: 900 MG
     Dates: start: 20230525, end: 20230622
  20. CLOZAPINE [Suspect]
     Active Substance: CLOZAPINE
     Dosage: 1300 MG
     Dates: start: 20231221, end: 20240311
  21. VERSACLOZ [Suspect]
     Active Substance: CLOZAPINE
     Dosage: 800 MG
     Dates: start: 20220802, end: 20221012
  22. VERSACLOZ [Suspect]
     Active Substance: CLOZAPINE
     Dosage: 800 MG
     Dates: start: 20221108, end: 20221205
  23. VERSACLOZ [Suspect]
     Active Substance: CLOZAPINE
     Dosage: 900 MG
     Dates: start: 20230623, end: 20230718
  24. VERSACLOZ [Suspect]
     Active Substance: CLOZAPINE
     Dosage: 950 MG
     Dates: start: 20230719, end: 20230817
  25. VERSACLOZ [Suspect]
     Active Substance: CLOZAPINE
     Dosage: 1100 MG
     Dates: start: 20230818, end: 20231003
  26. VERSACLOZ [Suspect]
     Active Substance: CLOZAPINE
     Dosage: 1200 MG
     Dates: start: 20231004, end: 20231128
  27. VERSACLOZ [Suspect]
     Active Substance: CLOZAPINE
     Dosage: 1300 MG
     Dates: start: 20231129, end: 20231220
  28. CLOZAPINE [Suspect]
     Active Substance: CLOZAPINE
     Dosage: 150 MG
     Dates: start: 20140529, end: 20140605
  29. CLOZAPINE [Suspect]
     Active Substance: CLOZAPINE
     Dosage: 300 MG
     Dates: start: 20140606, end: 20140612
  30. CLOZAPINE [Suspect]
     Active Substance: CLOZAPINE
     Dosage: 350 MG
     Dates: start: 20140613, end: 20140618
  31. CLOZAPINE [Suspect]
     Active Substance: CLOZAPINE
     Dosage: 400 MG
     Dates: start: 20140619, end: 20140713
  32. CLOZAPINE [Suspect]
     Active Substance: CLOZAPINE
     Dosage: 400 MG
     Dates: start: 20140722, end: 20140727
  33. CLOZAPINE [Suspect]
     Active Substance: CLOZAPINE
     Dosage: 450 MG
     Dates: start: 20140804, end: 20140817
  34. CLOZAPINE [Suspect]
     Active Substance: CLOZAPINE
     Dosage: 450 MG
     Dates: start: 20140826, end: 20140927
  35. CLOZAPINE [Suspect]
     Active Substance: CLOZAPINE
     Dosage: 12.5 MG
     Dates: start: 20141001, end: 20141007
  36. CLOZAPINE [Suspect]
     Active Substance: CLOZAPINE
     Dosage: 150 MG
     Dates: start: 20141008, end: 20141012
  37. CLOZAPINE [Suspect]
     Active Substance: CLOZAPINE
     Dosage: 150 MG
     Dates: start: 20141023, end: 20141026
  38. CLOZAPINE [Suspect]
     Active Substance: CLOZAPINE
     Dosage: 350 MG
     Dates: start: 20141223, end: 20150120
  39. CLOZAPINE [Suspect]
     Active Substance: CLOZAPINE
     Dosage: 350 MG
     Dates: start: 20150415, end: 20150608
  40. CLOZAPINE [Suspect]
     Active Substance: CLOZAPINE
     Dosage: 350 MG
     Dates: start: 20150804, end: 20151026
  41. CLOZAPINE [Suspect]
     Active Substance: CLOZAPINE
     Dosage: 300 MG
     Dates: start: 20151027, end: 20151102
  42. CLOZAPINE [Suspect]
     Active Substance: CLOZAPINE
     Dosage: 12.5 MG
     Dates: start: 20151106, end: 20151109
  43. CLOZAPINE [Suspect]
     Active Substance: CLOZAPINE
     Dosage: 100 MG
     Dates: start: 20151110, end: 20151113
  44. CLOZAPINE [Suspect]
     Active Substance: CLOZAPINE
     Dosage: 25 MG
     Dates: start: 20151117, end: 20151123
  45. CLOZAPINE [Suspect]
     Active Substance: CLOZAPINE
     Dosage: 175 MG
     Dates: start: 20151124, end: 20151129
  46. CLOZAPINE [Suspect]
     Active Substance: CLOZAPINE
     Dosage: 300 MG
     Dates: start: 20151130, end: 20160110
  47. CLOZAPINE [Suspect]
     Active Substance: CLOZAPINE
     Dosage: 450 MG
     Dates: start: 20160111, end: 20160113
  48. CLOZAPINE [Suspect]
     Active Substance: CLOZAPINE
     Dosage: 100 MG
     Dates: start: 20160217, end: 20160222
  49. CLOZAPINE [Suspect]
     Active Substance: CLOZAPINE
     Dosage: 250 MG
     Dates: start: 20160223, end: 20160229
  50. CLOZAPINE [Suspect]
     Active Substance: CLOZAPINE
     Dosage: 450 MG
     Dates: start: 20160301, end: 20160919
  51. CLOZAPINE [Suspect]
     Active Substance: CLOZAPINE
     Dosage: 400 MG
     Dates: start: 20160920, end: 20161017
  52. CLOZAPINE [Suspect]
     Active Substance: CLOZAPINE
     Dosage: 300 MG
     Dates: start: 20161018, end: 20170108
  53. CLOZAPINE [Suspect]
     Active Substance: CLOZAPINE
     Dosage: 200 MG
     Dates: start: 20170109, end: 20170111
  54. CLOZAPINE [Suspect]
     Active Substance: CLOZAPINE
     Dosage: 25 MG
     Dates: start: 20170126, end: 20170131
  55. CLOZAPINE [Suspect]
     Active Substance: CLOZAPINE
     Dosage: 125 MG
     Dates: start: 20170201, end: 20170207
  56. CLOZAPINE [Suspect]
     Active Substance: CLOZAPINE
     Dosage: 150 MG
     Dates: start: 20170501, end: 20170528
  57. CLOZAPINE [Suspect]
     Active Substance: CLOZAPINE
     Dosage: 325 MG
     Dates: start: 20170529, end: 20170625
  58. CLOZAPINE [Suspect]
     Active Substance: CLOZAPINE
     Dosage: 450 MG
     Dates: start: 20170626, end: 20170918
  59. CLOZAPINE [Suspect]
     Active Substance: CLOZAPINE
     Dosage: 350 MG
     Dates: start: 20170919, end: 20171019
  60. CLOZAPINE [Suspect]
     Active Substance: CLOZAPINE
     Dosage: 450 MG
     Dates: start: 20171020, end: 20171130
  61. CLOZAPINE [Suspect]
     Active Substance: CLOZAPINE
     Dosage: 350 MG
     Dates: start: 20171201, end: 20180123
  62. CLOZAPINE [Suspect]
     Active Substance: CLOZAPINE
     Dosage: 100 MG
     Dates: start: 20180124, end: 20180219
  63. CLOZAPINE [Suspect]
     Active Substance: CLOZAPINE
     Dosage: 250 MG
     Dates: start: 20180220, end: 20180322
  64. CLOZAPINE [Suspect]
     Active Substance: CLOZAPINE
     Dosage: 350 MG
     Dates: start: 20180323, end: 20180418
  65. CLOZAPINE [Suspect]
     Active Substance: CLOZAPINE
     Dosage: 50 MG
     Dates: start: 20180419, end: 20180515
  66. CLOZAPINE [Suspect]
     Active Substance: CLOZAPINE
     Dosage: 200 MG
     Dates: start: 20180516, end: 20180611
  67. CLOZAPINE [Suspect]
     Active Substance: CLOZAPINE
     Dosage: 250 MG
     Dates: start: 20180612, end: 20180619
  68. CLOZAPINE [Suspect]
     Active Substance: CLOZAPINE
     Dosage: 12.5 MG
     Dates: start: 20180828, end: 20180902
  69. CLOZAPINE [Suspect]
     Active Substance: CLOZAPINE
     Dosage: 150 MG
     Dates: start: 20180903, end: 20180909
  70. CLOZAPINE [Suspect]
     Active Substance: CLOZAPINE
     Dosage: 225 MG
     Dates: start: 20180910, end: 20180917
  71. CLOZAPINE [Suspect]
     Active Substance: CLOZAPINE
     Dosage: 350 MG
     Dates: start: 20180918, end: 20180924
  72. CLOZAPINE [Suspect]
     Active Substance: CLOZAPINE
     Dosage: 400 MG
     Dates: start: 20180925, end: 20181002
  73. CLOZAPINE [Suspect]
     Active Substance: CLOZAPINE
     Dosage: 25 MG
     Dates: start: 20181003, end: 20181010
  74. CLOZAPINE [Suspect]
     Active Substance: CLOZAPINE
     Dosage: 300 MG
     Dates: start: 20181011, end: 20181017
  75. CLOZAPINE [Suspect]
     Active Substance: CLOZAPINE
     Dosage: 350 MG
     Dates: start: 20181018, end: 20181024
  76. CLOZAPINE [Suspect]
     Active Substance: CLOZAPINE
     Dosage: 400 MG
     Dates: start: 20181025, end: 20181107
  77. CLOZAPINE [Suspect]
     Active Substance: CLOZAPINE
     Dosage: 450 MG
     Dates: start: 20181108, end: 20181113
  78. CLOZAPINE [Suspect]
     Active Substance: CLOZAPINE
     Dosage: 450 MG
     Dates: start: 20181115, end: 20181121
  79. CLOZAPINE [Suspect]
     Active Substance: CLOZAPINE
     Dosage: 500 MG
     Dates: start: 20181122, end: 20190226
  80. CLOZAPINE [Suspect]
     Active Substance: CLOZAPINE
     Dosage: 475 MG
     Dates: start: 20190227, end: 20190325
  81. CLOZAPINE [Suspect]
     Active Substance: CLOZAPINE
     Dosage: 400 MG
     Dates: start: 20190326, end: 20190424
  82. CLOZAPINE [Suspect]
     Active Substance: CLOZAPINE
     Dosage: 275 MG
     Dates: start: 20190425, end: 20190520
  83. CLOZAPINE [Suspect]
     Active Substance: CLOZAPINE
     Dosage: 175 MG
     Dates: start: 20190521, end: 20190619
  84. CLOZAPINE [Suspect]
     Active Substance: CLOZAPINE
     Dosage: 75 MG
     Dates: start: 20190620, end: 20190714
  85. CLOZAPINE [Suspect]
     Active Substance: CLOZAPINE
     Dosage: 600 MG
     Dates: start: 20200325, end: 20200331
  86. CLOZAPINE [Suspect]
     Active Substance: CLOZAPINE
     Dosage: 225 MG
     Dates: start: 20200401, end: 20200407
  87. CLOZAPINE [Suspect]
     Active Substance: CLOZAPINE
     Dosage: 300 MG
     Dates: start: 20200408, end: 20200414
  88. CLOZAPINE [Suspect]
     Active Substance: CLOZAPINE
     Dosage: 350 MG
     Dates: start: 20200415, end: 20200421
  89. CLOZAPINE [Suspect]
     Active Substance: CLOZAPINE
     Dosage: 500 MG
     Dates: start: 20200422, end: 20200428
  90. CLOZAPINE [Suspect]
     Active Substance: CLOZAPINE
     Dosage: 600 MG
     Dates: start: 20200429, end: 20200505
  91. CLOZAPINE [Suspect]
     Active Substance: CLOZAPINE
     Dosage: 800 MG
     Dates: start: 20200506, end: 20200916
  92. CLOZAPINE [Suspect]
     Active Substance: CLOZAPINE
     Dosage: 400 MG
     Dates: start: 20140714, end: 20140721
  93. CLOZAPINE [Suspect]
     Active Substance: CLOZAPINE
     Dosage: 400 MG
     Dates: start: 20140728, end: 20140803
  94. CLOZAPINE [Suspect]
     Active Substance: CLOZAPINE
     Dosage: 450 MG
     Dates: start: 20140818, end: 20140825
  95. CLOZAPINE [Suspect]
     Active Substance: CLOZAPINE
     Dosage: 150 MG
     Dates: start: 20141013, end: 20141022
  96. CLOZAPINE [Suspect]
     Active Substance: CLOZAPINE
     Dosage: 350 MG
     Dates: start: 20141027, end: 20141222
  97. CLOZAPINE [Suspect]
     Active Substance: CLOZAPINE
     Dosage: 350 MG
     Dates: start: 20150121, end: 20150414
  98. CLOZAPINE [Suspect]
     Active Substance: CLOZAPINE
     Dosage: 350 MG
     Dates: start: 20150609, end: 20150803
  99. CLOZAPINE [Suspect]
     Active Substance: CLOZAPINE
     Dosage: UNK
     Dates: start: 20151116, end: 20151116
  100. CLOZAPINE [Suspect]
     Active Substance: CLOZAPINE
     Dosage: UNK
     Dates: start: 20160211, end: 20160216
  101. CLOZAPINE [Suspect]
     Active Substance: CLOZAPINE
     Dosage: 450 MG
     Dates: start: 20181114, end: 20181114
  102. CLOZAPINE [Suspect]
     Active Substance: CLOZAPINE
     Dosage: 1300 MG
     Dates: start: 20240312

REACTIONS (4)
  - Hospitalisation [Unknown]
  - Treatment noncompliance [Recovered/Resolved]
  - Off label use [Not Recovered/Not Resolved]
  - Unevaluable event [Unknown]

NARRATIVE: CASE EVENT DATE: 20140927
